FAERS Safety Report 6620024-3 (Version None)
Quarter: 2010Q1

REPORT INFORMATION
  Report Type: 
  Country: None (occurrence: None)
  Receive Date: 20100309
  Receipt Date: 20100304
  Transmission Date: 20100710
  Serious: Yes (Hospitalization)
  Sender: FDA-Public Use
  Company Number: CH-ROCHE-676706

PATIENT
  Sex: Female
  Weight: 69 kg

DRUGS (5)
  1. BEVACIZUMAB [Suspect]
     Indication: BREAST CANCER
     Dosage: LAST DOSE PRIOR TO SAE 09 DECEMBER 2009, FORM TAKEN FROM THE PROTOCOL
     Route: 042
     Dates: start: 20091006
  2. EPIRUBICIN [Suspect]
     Indication: BREAST CANCER
     Dosage: LAST DOSE RECEIVED PRIOR TO SAE ON 09 DECEMBER 2009.
     Route: 042
     Dates: start: 20091006
  3. DOCETAXEL [Suspect]
     Indication: BREAST CANCER
     Dosage: LAST DOSE PRIOR TO SAE ON 31 DECEMBER 2009.
     Route: 042
     Dates: start: 20091231
  4. METAMIZOL [Concomitant]
     Dates: start: 20091223
  5. CYCLOPHOSPHAMIDE [Suspect]
     Indication: BREAST CANCER
     Route: 065

REACTIONS (3)
  - FEBRILE NEUTROPENIA [None]
  - MUCOSAL INFLAMMATION [None]
  - NEUTROPENIC COLITIS [None]
